FAERS Safety Report 9912803 (Version 2)
Quarter: 2014Q3

REPORT INFORMATION
  Report Type: Spontaneous
  Country: US (occurrence: US)
  Receive Date: 20140220
  Receipt Date: 20140812
  Transmission Date: 20150326
  Serious: No
  Sender: FDA-Public Use
  Company Number: US-PFIZER INC-2014043203

PATIENT
  Age: 50 Year
  Sex: Male
  Weight: 77.1 kg

DRUGS (4)
  1. NOVOLOG [Concomitant]
     Active Substance: INSULIN ASPART
     Indication: DIABETES MELLITUS
     Dosage: 15 (UNITS UNKNOWN), DAILY
  2. BENAZEPRIL [Concomitant]
     Active Substance: BENAZEPRIL\BENAZEPRIL HYDROCHLORIDE
     Dosage: 20 MG, DAILY
  3. LIPITOR [Suspect]
     Active Substance: ATORVASTATIN CALCIUM
     Indication: BLOOD CHOLESTEROL INCREASED
     Dosage: 10 OR 20 MG, DAILY
  4. BENAZEPRIL [Concomitant]
     Active Substance: BENAZEPRIL\BENAZEPRIL HYDROCHLORIDE
     Indication: HYPERTENSION
     Dosage: 10 MG, DAILY

REACTIONS (8)
  - Back pain [Not Recovered/Not Resolved]
  - Aspartate aminotransferase increased [Unknown]
  - Labelled drug-food interaction medication error [Unknown]
  - Musculoskeletal stiffness [Not Recovered/Not Resolved]
  - Myalgia [Not Recovered/Not Resolved]
  - Alanine aminotransferase increased [Unknown]
  - Pain in extremity [Not Recovered/Not Resolved]
  - Pain [Not Recovered/Not Resolved]

NARRATIVE: CASE EVENT DATE: 2014
